FAERS Safety Report 22189580 (Version 3)
Quarter: 2023Q4

REPORT INFORMATION
  Report Type: Report from Study
  Country: BR (occurrence: BR)
  Receive Date: 20230410
  Receipt Date: 20231228
  Transmission Date: 20240110
  Serious: Yes (Other)
  Sender: FDA-Public Use
  Company Number: BR-CELLTRION INC.-2023BR002708

PATIENT

DRUGS (6)
  1. INFLIXIMAB [Suspect]
     Active Substance: INFLIXIMAB
     Indication: Crohn^s disease
     Dosage: 4 AMPOULES EVERY 2 MONTHS (STARTED 4 MONTHS AGO)
     Route: 042
  2. TIBOLONE [Concomitant]
     Active Substance: TIBOLONE
     Dosage: 2.5 MG, 1 PILL PER DAY
     Route: 048
     Dates: start: 2013
  3. DEPAKOTE ER [Concomitant]
     Active Substance: DIVALPROEX SODIUM
     Indication: Depression
     Dosage: 500 MG, 1 PILL PER DAY
     Route: 048
     Dates: start: 2013
  4. ZOLPIDEM [Concomitant]
     Active Substance: ZOLPIDEM TARTRATE
     Indication: Insomnia
     Dosage: 0.5 MG, 2 PILLS PER DAY (6 YEARS AGO)
     Route: 048
  5. PRAMIPEXOLE [Concomitant]
     Active Substance: PRAMIPEXOLE
     Indication: Parkinsonism
     Dosage: 0.75 MG, 1 PILL PER DAY (19 YEARS AGO)
     Route: 048
  6. ZETRON [BUPROPION HYDROCHLORIDE] [Concomitant]
     Indication: Depression
     Dosage: 150 MILLIGRAM, (1 PILL PER DAY, 3 MONTHS AGO)
     Route: 048

REACTIONS (12)
  - Haematochezia [Unknown]
  - Sleep disorder [Unknown]
  - Pruritus [Unknown]
  - Dyspnoea [Unknown]
  - Malaise [Unknown]
  - Somnolence [Unknown]
  - Abdominal pain [Unknown]
  - Swelling [Unknown]
  - Back pain [Unknown]
  - Drug ineffective [Unknown]
  - Therapy interrupted [Unknown]
  - Intentional product use issue [Unknown]
